FAERS Safety Report 7294666-9 (Version None)
Quarter: 2011Q1

REPORT INFORMATION
  Report Type: 
  Country: None (occurrence: None)
  Receive Date: 20110216
  Receipt Date: 20110202
  Transmission Date: 20110831
  Serious: Yes (Death, Life-Threatening, Other)
  Sender: FDA-Public Use
  Company Number: US-BAYER-200924935NA

PATIENT
  Sex: Male
  Weight: 102 kg

DRUGS (6)
  1. NEXAVAR [Suspect]
     Indication: HEPATIC NEOPLASM MALIGNANT
     Route: 048
     Dates: start: 20090528, end: 20090604
  2. NEXAVAR [Suspect]
     Route: 048
     Dates: start: 20090605, end: 20090617
  3. OXYCONTIN [Concomitant]
     Dates: start: 20080401
  4. OXYCODONE [Concomitant]
     Dosage: 15
     Dates: start: 20080401
  5. NEXAVAR [Suspect]
     Route: 048
     Dates: start: 20090618, end: 20090624
  6. FLOMAX [Concomitant]
     Dates: start: 20060101

REACTIONS (3)
  - NEPHROLITHIASIS [None]
  - MULTI-ORGAN FAILURE [None]
  - THROMBOCYTOPENIA [None]
